FAERS Safety Report 4710889-4 (Version None)
Quarter: 2005Q3

REPORT INFORMATION
  Report Type: 
  Country: None (occurrence: None)
  Receive Date: 20050711
  Receipt Date: 20050707
  Transmission Date: 20060218
  Serious: Yes (Other)
  Sender: FDA-Public Use
  Company Number: DE-GLAXOSMITHKLINE-D0047039A

PATIENT
  Age: 26 Year
  Sex: Male

DRUGS (1)
  1. TAGONIS [Suspect]
     Dosage: 20MG UNKNOWN
     Route: 048

REACTIONS (2)
  - GINGIVAL BLEEDING [None]
  - PLATELET DISORDER [None]
